FAERS Safety Report 8062148-2 (Version None)
Quarter: 2012Q1

REPORT INFORMATION
  Report Type: 
  Country: None (occurrence: None)
  Receive Date: 20120120
  Receipt Date: 20120120
  Transmission Date: 20120608
  Serious: Yes (Hospitalization)
  Sender: FDA-Public Use
  Company Number: None

PATIENT
  Age: 69 Year
  Sex: Male
  Weight: 132.4 kg

DRUGS (1)
  1. CEPHALEXIN [Suspect]
     Indication: CELLULITIS
     Dosage: 500 MG QID PO
     Route: 048
     Dates: start: 20110912, end: 20110922

REACTIONS (1)
  - TUBULOINTERSTITIAL NEPHRITIS [None]
